FAERS Safety Report 4845394-8 (Version None)
Quarter: 2005Q4

REPORT INFORMATION
  Report Type: 
  Country: None (occurrence: None)
  Receive Date: 20051129
  Receipt Date: 20051114
  Transmission Date: 20060501
  Serious: Yes (Hospitalization)
  Sender: FDA-Public Use
  Company Number: 2005-134679-NL

PATIENT
  Age: 75 Year
  Sex: Female

DRUGS (14)
  1. MIRTAZAPINE [Suspect]
     Indication: DEPRESSION
     Dosage: 30 MG; ORAL
     Route: 048
     Dates: start: 20050309, end: 20050509
  2. MIRTAZAPINE [Suspect]
     Indication: PSYCHOTIC DISORDER
     Dosage: 30 MG; ORAL
     Route: 048
     Dates: start: 20050309, end: 20050509
  3. CLOPIDOGREL BISULFATE [Suspect]
     Dosage: 75 MG; ORAL
     Route: 048
  4. ENALAPRIL MALEATE [Suspect]
     Dosage: 15 MG; ORAL
     Route: 048
  5. ATORVASTATIN CALCIUM [Suspect]
     Indication: LIPIDS ABNORMAL
     Dosage: 10 MG; ORAL
     Route: 048
  6. PANTOPRAZOLE SODIUM [Suspect]
     Indication: GASTROINTESTINAL DISORDER
     Dosage: 40 MG; ORAL
     Route: 048
     Dates: start: 20050310
  7. TRIAMTERENE AND HYDROCHLOROTHIAZIDE [Suspect]
     Indication: DIURETIC THERAPY
     Dosage: 25 MG; ORAL
     Route: 048
     Dates: start: 20050310
  8. LORAZEPAM [Concomitant]
  9. ZOLPIDEM TARTRATE [Concomitant]
  10. AMISULPRIDE [Concomitant]
  11. LEVOTHYROXINE SODIUM [Concomitant]
  12. CITALOPRAM HYDROBROMIDE [Concomitant]
  13. VENLAFAXINE HYDROCHLORIDE [Concomitant]
  14. MOCLOBEMIDE [Concomitant]

REACTIONS (4)
  - DRUG INTERACTION [None]
  - HYPONATRAEMIA [None]
  - INAPPROPRIATE ANTIDIURETIC HORMONE SECRETION [None]
  - POLYDIPSIA PSYCHOGENIC [None]
